FAERS Safety Report 24215111 (Version 1)
Quarter: 2024Q3

REPORT INFORMATION
  Report Type: Report from Study
  Country: FR (occurrence: FR)
  Receive Date: 20240816
  Receipt Date: 20240816
  Transmission Date: 20241017
  Serious: Yes (Hospitalization, Other)
  Sender: JAZZ
  Company Number: FR-JAZZ PHARMACEUTICALS-2023-FR-019499

PATIENT

DRUGS (1)
  1. EPIDIOLEX [Suspect]
     Active Substance: CANNABIDIOL
     Indication: Encephalitis autoimmune
     Dosage: 14.3 MILLIGRAM/KILOGRAM, QD
     Route: 048

REACTIONS (11)
  - Hypoglycaemia [Unknown]
  - Lumbar puncture [Unknown]
  - Balance disorder [Unknown]
  - Bladder disorder [Unknown]
  - Abdominal pain [Not Recovered/Not Resolved]
  - Muscular weakness [Recovered/Resolved]
  - Dizziness [Recovered/Resolved]
  - Nausea [Recovered/Resolved]
  - Colitis [Recovering/Resolving]
  - Drug ineffective [Recovered/Resolved]
  - Off label use [Unknown]

NARRATIVE: CASE EVENT DATE: 20230909
